FAERS Safety Report 5752119-0 (Version None)
Quarter: 2008Q2

REPORT INFORMATION
  Report Type: 
  Country: None (occurrence: None)
  Receive Date: 20080529
  Receipt Date: 20080522
  Transmission Date: 20081010
  Serious: Yes (Hospitalization)
  Sender: FDA-Public Use
  Company Number: FR-AVENTIS-200811866FR

PATIENT
  Age: 55 Year
  Sex: Female

DRUGS (2)
  1. CLAFORAN [Suspect]
     Dates: start: 20080115, end: 20080120
  2. CIFLOX                             /00697201/ [Concomitant]
     Dates: start: 20080115, end: 20080120

REACTIONS (2)
  - SKIN EXFOLIATION [None]
  - URTICARIA [None]
